FAERS Safety Report 7305002-3 (Version None)
Quarter: 2011Q1

REPORT INFORMATION
  Report Type: 
  Country: None (occurrence: None)
  Receive Date: 20110222
  Receipt Date: 20100519
  Transmission Date: 20110831
  Serious: No
  Sender: FDA-Public Use
  Company Number: US-PFIZER INC-2010063761

PATIENT
  Sex: Male
  Weight: 121.9 kg

DRUGS (6)
  1. XALATAN [Suspect]
     Indication: GLAUCOMA
     Dosage: 1 GTT, 1X/DAY
     Route: 047
  2. LATANOPROST [Suspect]
  3. DORZOLAMIDE HYDROCHLORIDE AND TIMOLOL MALEATE [Concomitant]
     Indication: GLAUCOMA
     Dosage: UNK
  4. TARKA [Concomitant]
     Indication: HYPERTENSION
     Dosage: 4/240
     Route: 048
  5. BENICAR [Concomitant]
     Indication: HYPERTENSION
     Dosage: 40/12.5
     Route: 048
  6. INSULIN [Concomitant]
     Indication: TYPE 2 DIABETES MELLITUS
     Dosage: 34 IU, 2X/DAY

REACTIONS (1)
  - INTRAOCULAR PRESSURE FLUCTUATION [None]
